FAERS Safety Report 8770874 (Version 2)
Quarter: 2013Q1

REPORT INFORMATION
  Report Type: Spontaneous
  Country: US (occurrence: US)
  Receive Date: 20120906
  Receipt Date: 20130115
  Transmission Date: 20140127
  Serious: Yes (Hospitalization, Disabling)
  Sender: FDA-Public Use
  Company Number: US-009507513-1209USA001027

PATIENT
  Sex: 0

DRUGS (2)
  1. PROPECIA [Suspect]
     Indication: ALOPECIA
     Dosage: 1 MG TABLETS DAILY
     Route: 048
     Dates: start: 200603, end: 201001
  2. PREDNISONE [Concomitant]

REACTIONS (5)
  - Convulsion [Unknown]
  - Erectile dysfunction [Recovering/Resolving]
  - Cognitive disorder [Recovering/Resolving]
  - Adverse drug reaction [Unknown]
  - Fatigue [Unknown]
